FAERS Safety Report 8671843 (Version 3)
Quarter: 2012Q4

REPORT INFORMATION
  Report Type: 
  Country: US (occurrence: US)
  Receive Date: 20120718
  Receipt Date: 20120926
  Transmission Date: 20130627
  Serious: No
  Sender: FDA-Public Use
  Company Number: US-PFIZER INC-2012171131

PATIENT
  Sex: Female

DRUGS (9)
  1. ADVIL [Suspect]
     Dosage: UNK
     Route: 048
  2. GABAPENTIN [Suspect]
     Dosage: UNK
     Route: 048
  3. LISINOPRIL [Suspect]
     Dosage: UNK
     Route: 048
  4. ARICEPT [Suspect]
     Dosage: UNK
     Route: 048
  5. TRAMADOL HCL [Suspect]
     Dosage: UNK
     Route: 048
  6. REMERON [Suspect]
     Dosage: UNK
     Route: 048
  7. NAMENDA [Suspect]
     Dosage: UNK
     Route: 048
  8. CYCLOBENZAPRINE [Suspect]
     Dosage: UNK
     Route: 048
  9. NABUMETONE [Suspect]
     Dosage: UNK
     Route: 048

REACTIONS (3)
  - Drug screen positive [Recovered/Resolved]
  - Confusional state [Unknown]
  - Tremor [Unknown]
